FAERS Safety Report 18379015 (Version 1)
Quarter: 2020Q4

REPORT INFORMATION
  Report Type: Spontaneous
  Country: US (occurrence: US)
  Receive Date: 20201013
  Receipt Date: 20201013
  Transmission Date: 20210114
  Serious: No
  Sender: FDA-Public Use
  Company Number: US-ASTRAZENECA-2020SF29047

PATIENT
  Age: 20564 Day
  Sex: Male

DRUGS (1)
  1. FASENRA [Suspect]
     Active Substance: BENRALIZUMAB
     Indication: ASTHMA
     Route: 058
     Dates: start: 20200929

REACTIONS (5)
  - Pyrexia [Recovered/Resolved]
  - Feeling cold [Recovered/Resolved]
  - Heart rate increased [Recovered/Resolved]
  - Oxygen saturation decreased [Recovered/Resolved]
  - Chills [Recovered/Resolved]

NARRATIVE: CASE EVENT DATE: 20200929
